FAERS Safety Report 19382194 (Version 3)
Quarter: 2021Q3

REPORT INFORMATION
  Report Type: Report from Study
  Country: CA (occurrence: CA)
  Receive Date: 20210607
  Receipt Date: 20210817
  Transmission Date: 20211014
  Serious: Yes (Death, Hospitalization)
  Sender: FDA-Public Use
  Company Number: CA-EMD SERONO-9241889

PATIENT
  Age: 63 Year
  Sex: Male

DRUGS (1)
  1. BAVENCIO [Suspect]
     Active Substance: AVELUMAB
     Indication: HEPATIC CANCER
     Route: 042
     Dates: start: 20210419, end: 20210513

REACTIONS (3)
  - Small intestinal obstruction [Fatal]
  - Disease complication [Fatal]
  - Off label use [Unknown]

NARRATIVE: CASE EVENT DATE: 20210516
